FAERS Safety Report 6196862-0 (Version None)
Quarter: 2009Q2

REPORT INFORMATION
  Report Type: 
  Country: None (occurrence: None)
  Receive Date: 20090518
  Receipt Date: 20090518
  Transmission Date: 20091009
  Serious: No
  Sender: FDA-Public Use
  Company Number: None

PATIENT
  Age: 20 Year
  Sex: Male
  Weight: 72.5755 kg

DRUGS (1)
  1. TRAZODONE HCL [Suspect]
     Indication: SLEEP DISORDER
     Dosage: 2 TABS ONCE PO
     Route: 048
     Dates: start: 20080601, end: 20080601

REACTIONS (2)
  - ERECTILE DYSFUNCTION [None]
  - PRIAPISM [None]
